FAERS Safety Report 7770874-5 (Version None)
Quarter: 2011Q3

REPORT INFORMATION
  Report Type: 
  Country: None (occurrence: None)
  Receive Date: 20110922
  Receipt Date: 20110316
  Transmission Date: 20111222
  Serious: No
  Sender: FDA-Public Use
  Company Number: US-ASTRAZENECA-2011SE15011

PATIENT
  Age: 59 Year
  Sex: Male
  Weight: 117.9 kg

DRUGS (5)
  1. LUNESTA [Concomitant]
  2. CO-Q-10 [Concomitant]
  3. SEROQUEL XR [Suspect]
     Indication: ANXIETY
     Route: 048
     Dates: start: 20090101
  4. SEROQUEL XR [Suspect]
     Indication: SLEEP DISORDER
     Route: 048
     Dates: start: 20090101
  5. AMBIEN [Concomitant]

REACTIONS (6)
  - DRUG DOSE OMISSION [None]
  - OFF LABEL USE [None]
  - SOMNOLENCE [None]
  - WEIGHT INCREASED [None]
  - WRONG TECHNIQUE IN DRUG USAGE PROCESS [None]
  - SLEEP DISORDER [None]
